FAERS Safety Report 6686567-1 (Version None)
Quarter: 2010Q2

REPORT INFORMATION
  Report Type: 
  Country: None (occurrence: None)
  Receive Date: 20100419
  Receipt Date: 20100406
  Transmission Date: 20101027
  Serious: No
  Sender: FDA-Public Use
  Company Number: US-ROCHE-696156

PATIENT
  Sex: Female

DRUGS (1)
  1. OSELTAMIVIR PHOSPHATE [Suspect]
     Route: 065

REACTIONS (4)
  - ABORTION INDUCED [None]
  - LIVE BIRTH [None]
  - PREGNANCY [None]
  - PREMATURE LABOUR [None]
